FAERS Safety Report 9179238 (Version 4)
Quarter: 2013Q4

REPORT INFORMATION
  Report Type: Spontaneous
  Country: JP (occurrence: JP)
  Receive Date: 20130321
  Receipt Date: 20131120
  Transmission Date: 20140711
  Serious: Yes (Hospitalization)
  Sender: FDA-Public Use
  Company Number: JP-GLAXOSMITHKLINE-B0871578A

PATIENT
  Age: 83 Year
  Sex: Male
  Weight: 60 kg

DRUGS (7)
  1. VALTREX [Suspect]
     Indication: HERPES ZOSTER
     Dosage: 1000MG THREE TIMES PER DAY
     Route: 048
     Dates: start: 20130220, end: 20130225
  2. MICARDIS [Concomitant]
     Indication: HYPERTENSION
     Dosage: 20MG PER DAY
     Route: 048
  3. ADALAT-CR [Concomitant]
     Indication: HYPERTENSION
     Dosage: 20MG PER DAY
     Route: 048
  4. AMARYL [Concomitant]
     Indication: TYPE 2 DIABETES MELLITUS
     Dosage: .5MG PER DAY
     Route: 048
  5. CHINESE MEDICINE [Concomitant]
     Route: 048
  6. PURSENNID [Concomitant]
     Route: 048
  7. EVIPROSTAT [Concomitant]
     Route: 048

REACTIONS (9)
  - Renal disorder [Recovered/Resolved]
  - Encephalopathy [Recovering/Resolving]
  - Soliloquy [Unknown]
  - Altered state of consciousness [Recovering/Resolving]
  - Dysarthria [Unknown]
  - Poriomania [Unknown]
  - Decreased appetite [Unknown]
  - Toxicity to various agents [Unknown]
  - Renal failure acute [Recovered/Resolved]
